FAERS Safety Report 10037380 (Version 2)
Quarter: 2014Q2

REPORT INFORMATION
  Report Type: Spontaneous
  Country: GB (occurrence: GB)
  Receive Date: 20140326
  Receipt Date: 20140502
  Transmission Date: 20141212
  Serious: Yes (Other)
  Sender: FDA-Public Use
  Company Number: GB-ACCORD-022737

PATIENT
  Age: 50 Year
  Sex: Male
  Weight: 96 kg

DRUGS (1)
  1. AMLODIPINE ACCORD [Suspect]
     Indication: PRODUCT USED FOR UNKNOWN INDICATION
     Dates: start: 201304

REACTIONS (1)
  - Tunnel vision [Unknown]
